FAERS Safety Report 5399512-6 (Version None)
Quarter: 2007Q3

REPORT INFORMATION
  Report Type: 
  Country: None (occurrence: None)
  Receive Date: 20070727
  Receipt Date: 20070712
  Transmission Date: 20080115
  Serious: Yes (Hospitalization, Other)
  Sender: FDA-Public Use
  Company Number: US-PFIZER INC-2007034478

PATIENT
  Sex: Male
  Weight: 79.4 kg

DRUGS (4)
  1. BEXTRA [Suspect]
     Indication: PAIN
     Route: 048
     Dates: start: 20020801, end: 20040301
  2. BEXTRA [Suspect]
     Indication: INFLAMMATION
  3. BEXTRA [Suspect]
     Indication: OSTEOARTHRITIS
  4. BEXTRA [Suspect]
     Indication: ARTHRITIS

REACTIONS (2)
  - ANGINA PECTORIS [None]
  - CEREBROVASCULAR ACCIDENT [None]
